FAERS Safety Report 21588067 (Version 4)
Quarter: 2022Q4

REPORT INFORMATION
  Report Type: Report from Study
  Country: US (occurrence: US)
  Receive Date: 20221114
  Receipt Date: 20221207
  Transmission Date: 20230112
  Serious: Yes (Other)
  Sender: FDA-Public Use
  Company Number: US-ABBVIE-4198112

PATIENT
  Age: 69 Year
  Sex: Female

DRUGS (2)
  1. IMBRUVICA [Suspect]
     Active Substance: IBRUTINIB
     Indication: Chronic lymphocytic leukaemia
     Route: 048
  2. IMBRUVICA [Suspect]
     Active Substance: IBRUTINIB
     Indication: Chronic lymphocytic leukaemia
     Route: 048

REACTIONS (7)
  - Knee arthroplasty [Recovered/Resolved]
  - Hypertension [Recovered/Resolved]
  - Lymphadenopathy [Unknown]
  - Herpes zoster [Unknown]
  - Loss of consciousness [Unknown]
  - Heart rate irregular [Unknown]
  - Adenoidal hypertrophy [Unknown]

NARRATIVE: CASE EVENT DATE: 20211129
